FAERS Safety Report 12401688 (Version 1)
Quarter: 2016Q2

REPORT INFORMATION
  Report Type: Spontaneous
  Country: US (occurrence: US)
  Receive Date: 20160525
  Receipt Date: 20160525
  Transmission Date: 20160815
  Serious: Yes (Other)
  Sender: FDA-Public Use
  Company Number: US-SA-2016SA098550

PATIENT
  Age: 3 Year
  Sex: Male

DRUGS (1)
  1. SODIUM FLUORIDE. [Suspect]
     Active Substance: SODIUM FLUORIDE
     Route: 048
     Dates: start: 20160517, end: 20160517

REACTIONS (3)
  - Vomiting [Unknown]
  - Accidental exposure to product [Unknown]
  - Diarrhoea [Unknown]

NARRATIVE: CASE EVENT DATE: 20160517
